FAERS Safety Report 6543822-3 (Version None)
Quarter: 2010Q1

REPORT INFORMATION
  Report Type: 
  Country: None (occurrence: None)
  Receive Date: 20100115
  Receipt Date: 20100105
  Transmission Date: 20100710
  Serious: Yes (Hospitalization, Other)
  Sender: FDA-Public Use
  Company Number: 2009SP028418

PATIENT
  Age: 23 Year
  Sex: Female
  Weight: 83.0083 kg

DRUGS (5)
  1. NUVARING [Suspect]
     Indication: CONTRACEPTION
     Dosage: 1 DF; QM
     Dates: start: 20080320, end: 20081123
  2. CARISOPRODOL [Concomitant]
  3. CLONAZEPAM [Concomitant]
  4. IBUPROFEN [Concomitant]
  5. HYDROCODONE [Concomitant]

REACTIONS (4)
  - ARRHYTHMIA [None]
  - MALAISE [None]
  - PULMONARY EMBOLISM [None]
  - THROMBOSIS [None]
